FAERS Safety Report 8288327-7 (Version None)
Quarter: 2012Q2

REPORT INFORMATION
  Report Type: 
  Country: None (occurrence: None)
  Receive Date: 20120416
  Receipt Date: 20120123
  Transmission Date: 20120825
  Serious: No
  Sender: FDA-Public Use
  Company Number: US-SANOFI-AVENTIS-2012SA005193

PATIENT
  Sex: Female

DRUGS (1)
  1. CLOMID [Suspect]
     Route: 065

REACTIONS (1)
  - INFERTILITY FEMALE [None]
